FAERS Safety Report 5289108-9 (Version None)
Quarter: 2007Q1

REPORT INFORMATION
  Report Type: 
  Country: None (occurrence: None)
  Receive Date: 20070124
  Receipt Date: 20061106
  Transmission Date: 20070707
  Serious: Yes (Other)
  Sender: FDA-Public Use
  Company Number: US200601005520

PATIENT
  Age: 80 Year
  Sex: Female
  Weight: 54 kg

DRUGS (8)
  1. FORTEO [Suspect]
     Indication: OSTEOPOROSIS
     Dosage: 20 UG, DAILY (1/D), SUBCUTANEOUS
     Route: 058
     Dates: start: 20060112, end: 20060124
  2. FORTEO [Concomitant]
  3. KENALOG (TRIAMCINOLONE ACETONIDE) INJECTION [Concomitant]
  4. DYAZIDE /CAN/ (HYDROCHLOROTHIAZIDE, TRIAMTERENE) [Concomitant]
  5. VASOTEC [Concomitant]
  6. VITAMIN B12 [Concomitant]
  7. SYNTHROID [Concomitant]
  8. DARVOCET-N (PROPOXYPHENE NAPSYLATE UNKNOWN FORMULATION) [Concomitant]

REACTIONS (3)
  - HYPERSENSITIVITY [None]
  - INJECTION SITE ERYTHEMA [None]
  - NECK PAIN [None]
